FAERS Safety Report 25207050 (Version 2)
Quarter: 2025Q2

REPORT INFORMATION
  Report Type: Spontaneous
  Country: BR (occurrence: BR)
  Receive Date: 20250417
  Receipt Date: 20250505
  Transmission Date: 20250717
  Serious: Yes (Other)
  Sender: TAKEDA
  Company Number: BR-TAKEDA-2025TUS036751

PATIENT
  Sex: Male
  Weight: 57 kg

DRUGS (5)
  1. MESALAMINE [Suspect]
     Active Substance: MESALAMINE
     Indication: Crohn^s disease
     Dosage: UNK, Q12H
     Dates: start: 2015
  2. Neozine [Concomitant]
  3. PROMETHAZINE HYDROCHLORIDE [Concomitant]
     Active Substance: PROMETHAZINE HYDROCHLORIDE
  4. CLONAZEPAM [Concomitant]
     Active Substance: CLONAZEPAM
  5. DIAZEPAM [Concomitant]
     Active Substance: DIAZEPAM

REACTIONS (5)
  - Rectal haemorrhage [Recovered/Resolved]
  - Product physical issue [Unknown]
  - Drug ineffective [Recovered/Resolved]
  - Product packaging quantity issue [Unknown]
  - Poor quality product administered [Unknown]
